FAERS Safety Report 7366362-0 (Version None)
Quarter: 2011Q1

REPORT INFORMATION
  Report Type: 
  Country: None (occurrence: None)
  Receive Date: 20110322
  Receipt Date: 20110316
  Transmission Date: 20110831
  Serious: Yes (Death, Other)
  Sender: FDA-Public Use
  Company Number: US-SANOFI-AVENTIS-2010SA062098

PATIENT
  Sex: Male

DRUGS (1)
  1. NILANDRON [Suspect]
     Indication: PROSTATE CANCER
     Dosage: DOSE- MINIMAL AMOUNT
     Route: 048
     Dates: start: 20040101

REACTIONS (3)
  - LUNG DISORDER [None]
  - SYNCOPE [None]
  - DEATH [None]
